FAERS Safety Report 9162082 (Version 1)
Quarter: 2013Q1

REPORT INFORMATION
  Report Type: Spontaneous
  Country: US (occurrence: None)
  Receive Date: 20130118
  Receipt Date: 20130118
  Transmission Date: 20140127
  Serious: Yes (Hospitalization)
  Sender: FDA-Public Use
  Company Number: US-IGSA-GBI1164

PATIENT
  Age: 54 Year
  Sex: Female
  Weight: 97.3 kg

DRUGS (7)
  1. ALPHANATE [Suspect]
     Indication: VON WILLEBRAND^S DISEASE
     Route: 042
     Dates: start: 20130101
  2. INSULIN [Concomitant]
  3. LEVOTHYROXINE [Concomitant]
  4. BUPROPION [Concomitant]
  5. CITALOPRAM [Concomitant]
  6. FENTANYL [Concomitant]
  7. GABAPENTIN [Concomitant]

REACTIONS (2)
  - Myocardial infarction [None]
  - Post procedural complication [None]
